FAERS Safety Report 14256132 (Version 7)
Quarter: 2020Q1

REPORT INFORMATION
  Report Type: Report from Study
  Country: US (occurrence: US)
  Receive Date: 20171206
  Receipt Date: 20200110
  Transmission Date: 20200409
  Serious: Yes (Death, Hospitalization, Other)
  Sender: FDA-Public Use
  Company Number: US-TAKEDA-2017TUS025114

PATIENT
  Sex: Female

DRUGS (2)
  1. PONATINIB [Suspect]
     Active Substance: PONATINIB
     Indication: CHRONIC MYELOID LEUKAEMIA
     Dosage: 45 MILLIGRAM, QD
     Route: 048
     Dates: start: 20150402
  2. PONATINIB [Suspect]
     Active Substance: PONATINIB
     Dosage: 30 MILLIGRAM, QD
     Route: 048

REACTIONS (19)
  - Chronic myeloid leukaemia [Unknown]
  - Platelet count decreased [Unknown]
  - Balance disorder [Unknown]
  - Blood potassium increased [Unknown]
  - Migraine [Unknown]
  - Nerve injury [Unknown]
  - Cholelithiasis [Unknown]
  - Splenomegaly [Unknown]
  - Heart rate increased [Unknown]
  - Malaise [Unknown]
  - Ocular discomfort [Unknown]
  - Neutropenia [Unknown]
  - Death [Fatal]
  - Drug intolerance [Unknown]
  - Blood pressure increased [Unknown]
  - Pyrexia [Unknown]
  - Gait disturbance [Unknown]
  - Therapy non-responder [Unknown]
  - Pain [Unknown]
